FAERS Safety Report 8137754-7 (Version None)
Quarter: 2012Q1

REPORT INFORMATION
  Report Type: 
  Country: None (occurrence: None)
  Receive Date: 20120215
  Receipt Date: 20120201
  Transmission Date: 20120608
  Serious: Yes (Other)
  Sender: FDA-Public Use
  Company Number: PL-COVIDIEN/TYCO HEALTHCARE/MALLINCKRODT-T201200553

PATIENT
  Age: 80 Year
  Sex: Female

DRUGS (17)
  1. LISINOPRIL [Concomitant]
  2. ISOPHANE INSULIN [Concomitant]
  3. INSULIN [Concomitant]
  4. METOCLOPRAMIDE [Concomitant]
  5. GLICLAZIDE [Concomitant]
  6. VINPOCETINE [Concomitant]
  7. KETOPROFEN [Concomitant]
     Route: 042
  8. ACETYLSALICYLIC ACID SRT [Concomitant]
     Dosage: UNK
  9. PARACETAMOL [Concomitant]
     Indication: PAIN
  10. PIRACETAM [Concomitant]
  11. PERINDOPRIL ARGININE [Concomitant]
  12. FUROSEMIDE W/POTASSIUM CHLORIDE [Concomitant]
  13. TRAMADOL HCL [Suspect]
     Indication: PAIN
     Dosage: TWO SINGLE DOSES
     Route: 048
  14. ENOXAPARIN SODIUM [Concomitant]
  15. OMEPRAZOLE [Concomitant]
  16. AMLODIPINE [Concomitant]
  17. IV FLUIDS [Concomitant]

REACTIONS (3)
  - DIABETIC NEPHROPATHY [None]
  - DELIRIUM [None]
  - INFLAMMATION [None]
